FAERS Safety Report 22610700 (Version 1)
Quarter: 2023Q2

REPORT INFORMATION
  Report Type: Spontaneous
  Country: US (occurrence: None)
  Receive Date: 20230615
  Receipt Date: 20230615
  Transmission Date: 20230721
  Serious: Yes (Hospitalization)
  Sender: FDA-Public Use
  Company Number: None

PATIENT
  Age: 75 Year
  Sex: Male

DRUGS (1)
  1. TACROLIMUS [Suspect]
     Active Substance: TACROLIMUS
     Indication: Renal transplant
     Dosage: OTHER QUANTITY : 1CS QAM+ CS QPM;?
     Route: 048
     Dates: start: 20210915

REACTIONS (1)
  - Localised infection [None]

NARRATIVE: CASE EVENT DATE: 20230615
